FAERS Safety Report 12547213 (Version 2)
Quarter: 2017Q1

REPORT INFORMATION
  Report Type: Spontaneous
  Country: US (occurrence: US)
  Receive Date: 20160711
  Receipt Date: 20170119
  Transmission Date: 20170428
  Serious: No
  Sender: FDA-Public Use
  Company Number: US-EGALET US INC-US-2015EGA000123

PATIENT

DRUGS (3)
  1. ACEBUTOLOL [Concomitant]
     Active Substance: ACEBUTOLOL
     Indication: PRODUCT USED FOR UNKNOWN INDICATION
     Dosage: 400 MG, QD
  2. FLORINEF ACETATE [Concomitant]
     Active Substance: FLUDROCORTISONE ACETATE
     Indication: PRODUCT USED FOR UNKNOWN INDICATION
     Dosage: 0.2 MG, QD
  3. SPRIX [Suspect]
     Active Substance: KETOROLAC TROMETHAMINE
     Indication: BREAKTHROUGH PAIN
     Dosage: 1 DF, EVERY 6-8 HOURS AS NEEDED
     Route: 045
     Dates: start: 20140722

REACTIONS (4)
  - Nasal discomfort [Recovered/Resolved]
  - Expired product administered [Unknown]
  - Burning sensation [Unknown]
  - Product container issue [Unknown]

NARRATIVE: CASE EVENT DATE: 2015
